FAERS Safety Report 9644797 (Version 1)
Quarter: 2013Q4

REPORT INFORMATION
  Report Type: Spontaneous
  Country: US (occurrence: None)
  Receive Date: 20131023
  Receipt Date: 20131023
  Transmission Date: 20140711
  Serious: No
  Sender: FDA-Public Use
  Company Number: None

PATIENT
  Age: 45 Year
  Sex: Female
  Weight: 61.24 kg

DRUGS (1)
  1. TYSABRI [Suspect]
     Dosage: MONTHLY INFUSION -- INTO A VEIN
     Dates: start: 20131004, end: 20131004

REACTIONS (1)
  - Alopecia [None]
